FAERS Safety Report 6028052-6 (Version None)
Quarter: 2008Q4

REPORT INFORMATION
  Report Type: 
  Country: None (occurrence: None)
  Receive Date: 20081231
  Receipt Date: 20081222
  Transmission Date: 20090506
  Serious: Yes (Hospitalization)
  Sender: FDA-Public Use
  Company Number: 1-17150321

PATIENT
  Age: 4 Year
  Sex: Female

DRUGS (1)
  1. CLOBETASOL PROPIONATE OINTMENT USP 0.05% [Suspect]
     Indication: PSORIASIS
     Dosage: CUTANEOUS
     Route: 003
     Dates: start: 20030301, end: 20030701

REACTIONS (8)
  - ABDOMINAL PAIN [None]
  - ANOREXIA [None]
  - CUSHINGOID [None]
  - HYPERTRICHOSIS [None]
  - MALAISE [None]
  - PUSTULAR PSORIASIS [None]
  - PYREXIA [None]
  - STEROID WITHDRAWAL SYNDROME [None]
